FAERS Safety Report 16721853 (Version 12)
Quarter: 2022Q1

REPORT INFORMATION
  Report Type: Report from Study
  Country: AT (occurrence: AT)
  Receive Date: 20190820
  Receipt Date: 20220110
  Transmission Date: 20220423
  Serious: Yes (Hospitalization, Other)
  Sender: FDA-Public Use
  Company Number: AT-ROCHE-2200138

PATIENT
  Age: 62 Year
  Sex: Female
  Weight: 80 kg

DRUGS (73)
  1. TRASTUZUMAB [Suspect]
     Active Substance: TRASTUZUMAB
     Indication: Breast cancer metastatic
     Dosage: 480 MILLIGRAM, Q3W (MOST RECENT DOSE PRIOR TO THE EVENT WAS RECEIVED)DOSE ON
     Route: 042
     Dates: start: 20170306, end: 20171121
  2. TRASTUZUMAB [Suspect]
     Active Substance: TRASTUZUMAB
     Dosage: 3.3 MILLIGRAM/SQ. METER, Q3W(MOST RECENT DOSE PRIOR TO THE EVENT)
     Route: 042
     Dates: start: 20180515
  3. TRASTUZUMAB [Suspect]
     Active Substance: TRASTUZUMAB
     Dosage: 3.6 MILLIGRAM/SQ. METER, Q3W
     Route: 042
     Dates: start: 20171212, end: 20180424
  4. PERTUZUMAB [Suspect]
     Active Substance: PERTUZUMAB
     Indication: HER2 positive breast cancer
     Dosage: 420 MILLIGRAM, Q3WDOSE ON: 21/NOV/2017
     Route: 042
     Dates: start: 20170306, end: 20171121
  5. NAVELBINE [Suspect]
     Active Substance: VINORELBINE TARTRATE
     Indication: HER2 positive breast cancer
     Dosage: 50 MILLIGRAM (MOST RECENT DOSE PRIOR TO THE EVENT RECEIVED, 27/JUN/2017)
     Route: 048
     Dates: start: 20170306, end: 20170530
  6. ADO-TRASTUZUMAB EMTANSINE [Suspect]
     Active Substance: ADO-TRASTUZUMAB EMTANSINE
     Indication: Breast cancer metastatic
     Dosage: 3.3 MILLIGRAM/SQ. METER, Q3W
     Route: 042
     Dates: start: 20180515
  7. ADO-TRASTUZUMAB EMTANSINE [Suspect]
     Active Substance: ADO-TRASTUZUMAB EMTANSINE
     Dosage: 3.6 MILLIGRAM,SQ M, START 12-DEC-2017, DOSE ON 24/APR/2018, 15/MAY/2018
     Dates: start: 20171212
  8. ADO-TRASTUZUMAB EMTANSINE [Suspect]
     Active Substance: ADO-TRASTUZUMAB EMTANSINE
     Dosage: 3.6 MILLIGRAM, START 12-DEC-2017, DOSE ON 24/APR/2018, 15/MAY/2018
     Route: 042
     Dates: end: 20180424
  9. CAPECITABINE [Suspect]
     Active Substance: CAPECITABINE
     Indication: HER2 positive breast cancer
     Dosage: 3500 MILLIGRAM, QD START 04-SEP-2018, DOSE ON: 04/SEP/2018, 10/SEP/2018,
     Route: 048
     Dates: end: 20180910
  10. CAPECITABINE [Suspect]
     Active Substance: CAPECITABINE
     Dosage: MOST RECENT DOSE:27/MAY/2019
     Route: 048
  11. LAPATINIB [Suspect]
     Active Substance: LAPATINIB
     Indication: Breast cancer metastatic
     Dosage: 1000 MILLIGRAM, QD
     Route: 048
     Dates: start: 20181227, end: 20190116
  12. LAPATINIB [Suspect]
     Active Substance: LAPATINIB
     Dosage: 750 MILLIGRAM, QD
     Route: 048
     Dates: start: 20190116, end: 20190206
  13. EMEND [Concomitant]
     Active Substance: APREPITANT
     Dosage: UNK, START 27-JAN-2018
     Route: 065
     Dates: end: 20181013
  14. EMEND [Concomitant]
     Active Substance: APREPITANT
     Dosage: UNK, START 28-JAN-2018
     Route: 065
     Dates: end: 20181014
  15. EMEND [Concomitant]
     Active Substance: APREPITANT
     Dosage: UNK, START 29-JAN-2018
     Route: 065
     Dates: end: 20181015
  16. DEXAMETHASONE [Concomitant]
     Active Substance: DEXAMETHASONE
     Indication: Product used for unknown indication
     Dosage: ONGOING = NOT CHECKED, START 15-FEB-2019
     Route: 065
     Dates: end: 20190215
  17. DEXAMETHASONE [Concomitant]
     Active Substance: DEXAMETHASONE
     Dosage: ONGOING = NOT CHECKED, START 15-FEB-2019
     Route: 065
     Dates: end: 20190907
  18. DEXAMETHASONE [Concomitant]
     Active Substance: DEXAMETHASONE
     Dosage: UNK, START 29-AUG-2017
     Route: 065
     Dates: end: 20181013
  19. METAMIZOLE [Concomitant]
     Active Substance: METAMIZOLE
     Indication: Back pain
     Dosage: UNK, START 27-MAR-2017
     Route: 065
     Dates: end: 20191003
  20. METAMIZOLE [Concomitant]
     Active Substance: METAMIZOLE
     Indication: Hepatic pain
     Dosage: UNK, START 12-DEC-2017
     Route: 065
     Dates: end: 20190907
  21. METAMIZOLE [Concomitant]
     Active Substance: METAMIZOLE
     Indication: Respiratory tract infection
     Dosage: UNK, START 15-MAR-2019
     Dates: end: 20190907
  22. METAMIZOLE [Concomitant]
     Active Substance: METAMIZOLE
     Dosage: UNK, START 09-MAY-2019
     Dates: end: 20190509
  23. METAMIZOLE [Concomitant]
     Active Substance: METAMIZOLE
     Dosage: ONGOING = CHECKED, START 27-MAR-2017
     Route: 065
  24. METAMIZOLE [Concomitant]
     Active Substance: METAMIZOLE
     Dosage: ONGOING = CHECKED, START 12-DEC-2017
     Route: 065
  25. Paspertin [Concomitant]
     Indication: Product used for unknown indication
     Dosage: UNK, START 12-DEC-2017
     Route: 065
     Dates: end: 20190907
  26. Paspertin [Concomitant]
     Dosage: ONGOING = CHECKED, START 12-DEC-2017
     Route: 065
  27. HYDROMORPHONE HYDROCHLORIDE [Concomitant]
     Active Substance: HYDROMORPHONE HYDROCHLORIDE
     Indication: Back pain
     Dosage: UNK, START 28-JUN-2018
     Route: 065
     Dates: end: 20190226
  28. HYDROMORPHONE HYDROCHLORIDE [Concomitant]
     Active Substance: HYDROMORPHONE HYDROCHLORIDE
     Dosage: UNK, START 27-DEC-2018
     Route: 065
  29. LYRICA [Concomitant]
     Active Substance: PREGABALIN
     Indication: Back pain
     Dosage: UNK, START 27-DEC-2018
     Route: 065
     Dates: end: 20190226
  30. LYRICA [Concomitant]
     Active Substance: PREGABALIN
     Dosage: ONGOING = CHECKED
     Route: 065
  31. ZYRTEC [Concomitant]
     Active Substance: CETIRIZINE HYDROCHLORIDE
     Indication: Pruritus
     Dosage: UNK, START 27-MAR-2017
     Route: 065
  32. TRAZODONE HYDROCHLORIDE [Concomitant]
     Active Substance: TRAZODONE HYDROCHLORIDE
     Dosage: UNK, START 15-DEC-2018
     Route: 065
     Dates: end: 20190226
  33. KYTRIL [Concomitant]
     Active Substance: GRANISETRON HYDROCHLORIDE
     Dosage: UNK, START 12-DEC-2017
     Route: 065
     Dates: end: 20181013
  34. PANTOPRAZOLE SODIUM [Concomitant]
     Active Substance: PANTOPRAZOLE SODIUM
     Dosage: ONGOING = CHECKED
     Route: 065
     Dates: start: 20170302
  35. Daflon [Concomitant]
     Indication: Product used for unknown indication
     Dosage: UNK
     Route: 065
     Dates: end: 20190907
  36. Daflon [Concomitant]
     Dosage: ONGOING = CHECKED
     Route: 065
  37. Daflon [Concomitant]
     Dosage: UNK
     Route: 065
     Dates: start: 20190907
  38. LACTULOSE [Concomitant]
     Active Substance: LACTULOSE
     Dosage: UNK, START 12-DEC-2017
     Route: 065
     Dates: end: 20190907
  39. LACTULOSE [Concomitant]
     Active Substance: LACTULOSE
     Dosage: ONGOING = CHECKED, START 12-DEC-2017
     Route: 065
  40. Temesta [Concomitant]
     Indication: Back pain
     Dosage: ONGOING = CHECKED, START 26-FEB-2019
     Route: 065
  41. ZOLPIDEM [Concomitant]
     Active Substance: ZOLPIDEM TARTRATE
     Dosage: ONGOING = NOT CHECKED, START 15-FEB-2019
     Route: 065
     Dates: end: 20190315
  42. DEXAMETHASONE [Concomitant]
     Active Substance: DEXAMETHASONE
     Dosage: UNK, START 29-AUG-2017
     Route: 065
     Dates: end: 20181013
  43. EDOXABAN TOSYLATE [Concomitant]
     Active Substance: EDOXABAN TOSYLATE
     Indication: Pulmonary embolism
     Dosage: ONGOING = NOT CHECKED, START 15-MAR-2019
     Route: 065
     Dates: end: 20190907
  44. EDOXABAN TOSYLATE [Concomitant]
     Active Substance: EDOXABAN TOSYLATE
     Dosage: ONGOING = CHECKED, START 15-MAR-2019
  45. MIRTAZAPINE [Concomitant]
     Active Substance: MIRTAZAPINE
     Indication: Product used for unknown indication
     Dosage: UNK ONGOING = NOT CHECKED, START 15-MAR-2019
     Route: 065
     Dates: end: 20190907
  46. MIRTAZAPINE [Concomitant]
     Active Substance: MIRTAZAPINE
     Dosage: UNK ONGOING = CHECKED, START 15-MAR-2019
  47. LASIX [Concomitant]
     Active Substance: FUROSEMIDE
     Indication: Pulmonary embolism
     Dosage: UNK, START 15-MAR-2019
     Route: 065
     Dates: end: 20190907
  48. LASIX [Concomitant]
     Active Substance: FUROSEMIDE
     Dosage: ONGOING = CHECKED
     Route: 065
  49. LASIX [Concomitant]
     Active Substance: FUROSEMIDE
     Dosage: ONGOING = CHECKED, START 07-SEP-2019
     Route: 065
  50. SUCRALFATE [Concomitant]
     Active Substance: SUCRALFATE
     Indication: Product used for unknown indication
     Dosage: UNK
     Route: 065
     Dates: end: 20190907
  51. SUCRALFATE [Concomitant]
     Active Substance: SUCRALFATE
     Dosage: ONGOING = CHECKED, START 07-SEP-2019
     Route: 065
  52. BISOPROLOL FUMARATE [Concomitant]
     Active Substance: BISOPROLOL FUMARATE
     Dosage: UNK
     Route: 065
     Dates: end: 20190907
  53. BISOPROLOL FUMARATE [Concomitant]
     Active Substance: BISOPROLOL FUMARATE
     Dosage: ONGOING = CHECKED
     Route: 065
  54. BAMBUTEROL HYDROCHLORIDE [Concomitant]
     Active Substance: BAMBUTEROL HYDROCHLORIDE
     Dosage: UNK
     Route: 065
  55. BAMBUTEROL HYDROCHLORIDE [Concomitant]
     Active Substance: BAMBUTEROL HYDROCHLORIDE
     Dosage: ONGOING = CHECKED
     Route: 065
  56. Kalioral [Concomitant]
     Dosage: UNK ONGOING = CHECKED
     Route: 065
  57. BUPRENORPHINE [Concomitant]
     Active Substance: BUPRENORPHINE
     Dosage: UNK
     Route: 065
  58. BUPRENORPHINE [Concomitant]
     Active Substance: BUPRENORPHINE
     Dosage: ONGOING = CHECKED
     Route: 065
  59. VENLAFAXINE HYDROCHLORIDE [Concomitant]
     Active Substance: VENLAFAXINE HYDROCHLORIDE
     Indication: Product used for unknown indication
     Dosage: UNK (ONGOING = NOT CHECKED), START 15-MAR-2019
  60. Paracodin [Concomitant]
     Indication: Dyspnoea
     Dosage: UNK (ONGOING = CHECKED), START 10-MAY-2019
  61. Paracodin [Concomitant]
     Dosage: ONGOING = CHECKED, START 09-MAY-2019
  62. AUGMENTIN [Concomitant]
     Active Substance: AMOXICILLIN\CLAVULANATE POTASSIUM
     Indication: Respiratory tract infection
     Dosage: UNK (ONGOING = NOT CHECKED), START 09-MAY-2019
     Dates: end: 20190516
  63. CORTISONE ACETATE [Concomitant]
     Active Substance: CORTISONE ACETATE
     Indication: Respiratory tract infection
     Dosage: UNK (ONGOING = NOT CHECKED), START 15-JUN-2019
     Dates: end: 20190615
  64. DOXYCYCLINE [Concomitant]
     Active Substance: DOXYCYCLINE
     Indication: Respiratory tract infection
     Dosage: UNK (ONGOING = NOT CHECKED), START 02-MAY-2019
     Dates: end: 20190509
  65. PREDNISOLONE SODIUM SUCCINATE [Concomitant]
     Active Substance: PREDNISOLONE SODIUM SUCCINATE
     Dosage: UNK
  66. ACETAMINOPHEN [Concomitant]
     Active Substance: ACETAMINOPHEN
     Dosage: UNK
  67. DIMETHINDENE [Concomitant]
     Active Substance: DIMETHINDENE
     Dosage: UNK
  68. BUPRENORPHINE HYDROCHLORIDE [Concomitant]
     Active Substance: BUPRENORPHINE HYDROCHLORIDE
     Dosage: UNK
  69. BUPRENORPHINE HYDROCHLORIDE [Concomitant]
     Active Substance: BUPRENORPHINE HYDROCHLORIDE
     Dosage: UNK, START 08-SEP-2019
     Route: 065
  70. DIAMOX SEQUELS [Concomitant]
     Active Substance: ACETAZOLAMIDE
     Dosage: UNK
  71. RANITIDINE HYDROCHLORIDE [Concomitant]
     Active Substance: RANITIDINE HYDROCHLORIDE
     Dosage: UNK
  72. LAPATINIB DITOSYLATE [Concomitant]
     Active Substance: LAPATINIB DITOSYLATE
     Indication: Breast cancer metastatic
     Dosage: 1000 MILLIGRAM, START 27-DEC-2018
     Route: 048
     Dates: end: 20190116
  73. LAPATINIB DITOSYLATE [Concomitant]
     Active Substance: LAPATINIB DITOSYLATE
     Dosage: 750 MILLIGRAM, START 16-JAN-2019
     Route: 048
     Dates: end: 20190206

REACTIONS (14)
  - Blindness [Recovered/Resolved with Sequelae]
  - Vertigo [Not Recovered/Not Resolved]
  - Angina pectoris [Recovered/Resolved]
  - Polyneuropathy [Not Recovered/Not Resolved]
  - Headache [Unknown]
  - Dyspnoea exertional [Not Recovered/Not Resolved]
  - Vomiting [Recovered/Resolved]
  - Visual impairment [Not Recovered/Not Resolved]
  - Chills [Recovered/Resolved]
  - Cough [Recovered/Resolved]
  - Epistaxis [Recovered/Resolved]
  - Nausea [Recovered/Resolved]
  - Myalgia [Recovered/Resolved]
  - Bone pain [Recovered/Resolved]

NARRATIVE: CASE EVENT DATE: 20170306
